FAERS Safety Report 24849197 (Version 4)
Quarter: 2025Q1

REPORT INFORMATION
  Report Type: Spontaneous
  Country: US (occurrence: US)
  Receive Date: 20250116
  Receipt Date: 20250222
  Transmission Date: 20250409
  Serious: Yes (Disabling, Other)
  Sender: AMGEN
  Company Number: US-AMGEN-USASP2025005465

PATIENT
  Age: 75 Year
  Sex: Male

DRUGS (23)
  1. TEPEZZA [Suspect]
     Active Substance: TEPROTUMUMAB-TRBW
     Indication: Exophthalmos
     Dosage: 950 MILLIGRAM, Q3WK (FIRST INFUSION)
     Route: 040
     Dates: start: 20220916
  2. TEPEZZA [Suspect]
     Active Substance: TEPROTUMUMAB-TRBW
     Indication: Endocrine ophthalmopathy
     Dosage: 1900 MILLIGRAM, Q3WK (SECOND INFUSION)
     Route: 040
     Dates: start: 20221010
  3. TEPEZZA [Suspect]
     Active Substance: TEPROTUMUMAB-TRBW
     Indication: Graves^ disease
     Dosage: 1900 MILLIGRAM, Q3WK (THIRD INFUSION)
     Route: 040
     Dates: start: 20221031
  4. TEPEZZA [Suspect]
     Active Substance: TEPROTUMUMAB-TRBW
     Dosage: 1900 MILLIGRAM, Q3WK (FOURTH INFUSION)
     Route: 040
     Dates: start: 20221121
  5. TEPEZZA [Suspect]
     Active Substance: TEPROTUMUMAB-TRBW
     Dosage: 1900 MILLIGRAM, Q3WK (FIFTH INFUSION)
     Route: 040
     Dates: start: 20221212
  6. PREDNISONE [Suspect]
     Active Substance: PREDNISONE
     Indication: Product used for unknown indication
     Route: 065
  7. ZOCOR [Concomitant]
     Active Substance: SIMVASTATIN
     Dosage: 40 MILLIGRAM, QD
     Route: 048
  8. PRINIVIL [Concomitant]
     Active Substance: LISINOPRIL
     Dosage: 40 MILLIGRAM, QD
     Route: 048
  9. DYAZIDE [Concomitant]
     Active Substance: HYDROCHLOROTHIAZIDE\TRIAMTERENE
     Dosage: UNK UNK, QD
     Route: 048
  10. K dur [Concomitant]
     Dosage: 20 MILLIEQUIVALENT, QD
     Route: 048
  11. TAPAZOLE [Concomitant]
     Active Substance: METHIMAZOLE
     Route: 048
  12. TAPAZOLE [Concomitant]
     Active Substance: METHIMAZOLE
     Dosage: 5 MILLIGRAM, QD (DOSE DECREASED)
     Route: 048
  13. MINERALS\VITAMINS [Concomitant]
     Active Substance: MINERALS\VITAMINS
     Route: 048
  14. ZYRTEC [Concomitant]
     Active Substance: CETIRIZINE HYDROCHLORIDE
     Route: 048
  15. ECOTRIN [Concomitant]
     Active Substance: ASPIRIN
     Dosage: 81 MILLIGRAM, QD
     Route: 048
  16. GLUCOSAMINE MSM [Concomitant]
     Dosage: UNK UNK, BID
     Route: 048
  17. NASALCROM [Concomitant]
     Active Substance: CROMOLYN SODIUM
     Dosage: UNK UNK, QID (ADMINISTER 1 SPRAY INTO EACH NOSTRIL)
     Route: 045
  18. BOTOX [Concomitant]
     Active Substance: ONABOTULINUMTOXINA
     Dosage: UNK UNK, Q3MO
     Route: 065
  19. SODIUM CHLORIDE [Concomitant]
     Active Substance: SODIUM CHLORIDE
  20. Artificial tears [Concomitant]
     Dosage: UNK, QD  (IN BOTH EYES)
     Route: 047
  21. Artificial tears [Concomitant]
     Dosage: UNK, QID (IN BOTH EYES)
     Route: 047
  22. PROPARACAINE [Concomitant]
     Active Substance: PROPARACAINE
     Route: 061
  23. GLUCOSAMINE [Concomitant]
     Active Substance: GLUCOSAMINE

REACTIONS (14)
  - Deafness permanent [Not Recovered/Not Resolved]
  - Endocrine ophthalmopathy [Unknown]
  - Graves^ disease [Unknown]
  - Muscle spasms [Unknown]
  - Diarrhoea [Unknown]
  - Fatigue [Unknown]
  - Blood glucose increased [Unknown]
  - Brain fog [Unknown]
  - Eye irritation [Unknown]
  - Pain [Unknown]
  - Emotional distress [Unknown]
  - Anxiety [Unknown]
  - Tinnitus [Not Recovered/Not Resolved]
  - Product use complaint [Unknown]

NARRATIVE: CASE EVENT DATE: 20220101
